FAERS Safety Report 5502536-9 (Version None)
Quarter: 2007Q4

REPORT INFORMATION
  Report Type: 
  Country: None (occurrence: None)
  Receive Date: 20071030
  Receipt Date: 20071023
  Transmission Date: 20080405
  Serious: Yes (Other)
  Sender: FDA-Public Use
  Company Number: US-BOEHRINGER INGELHEIM PHARMACEUTICALS, INC.-2007-BP-23231BP

PATIENT
  Age: 62 Year
  Sex: Male

DRUGS (3)
  1. MOBIC [Suspect]
     Indication: OSTEOARTHRITIS
     Dates: start: 20070531
  2. STUDY DRUG [Suspect]
     Indication: OSTEOARTHRITIS
     Route: 065
  3. ASPIRIN [Concomitant]

REACTIONS (9)
  - ASTHENIA [None]
  - CATARACT [None]
  - DIZZINESS [None]
  - HEADACHE [None]
  - ORTHOSTATIC HYPOTENSION [None]
  - POSTURE ABNORMAL [None]
  - SOMNOLENCE [None]
  - TRANSIENT ISCHAEMIC ATTACK [None]
  - VISION BLURRED [None]
